FAERS Safety Report 17558960 (Version 2)
Quarter: 2020Q3

REPORT INFORMATION
  Report Type: Report from Study
  Country: None (occurrence: US)
  Receive Date: 20200319
  Receipt Date: 20200711
  Transmission Date: 20201102
  Serious: Yes (Death, Other)
  Sender: FDA-Public Use
  Company Number: US-ABBVIE-20P-163-3284201-00

PATIENT
  Age: 80 Year
  Sex: Male

DRUGS (1)
  1. IMBRUVICA [Suspect]
     Active Substance: IBRUTINIB
     Indication: CHRONIC LYMPHOCYTIC LEUKAEMIA
     Route: 048
     Dates: start: 20190412, end: 202002

REACTIONS (4)
  - Lung carcinoma cell type unspecified stage IV [Fatal]
  - Metastases to bone [Fatal]
  - Metastases to adrenals [Fatal]
  - Pneumonia [Unknown]

NARRATIVE: CASE EVENT DATE: 202002
